FAERS Safety Report 8298402-9 (Version None)
Quarter: 2012Q2

REPORT INFORMATION
  Report Type: 
  Country: None (occurrence: None)
  Receive Date: 20120419
  Receipt Date: 20120416
  Transmission Date: 20120825
  Serious: Yes (Other)
  Sender: FDA-Public Use
  Company Number: VE-PFIZER INC-2012072551

PATIENT
  Age: 63 Year
  Sex: Female

DRUGS (1)
  1. LIPITOR [Suspect]
     Indication: HYPERCHOLESTEROLAEMIA
     Dosage: 40 MG, ONCE DAILY
     Route: 048
     Dates: start: 20090101

REACTIONS (3)
  - BRAIN NEOPLASM MALIGNANT [None]
  - BREAST CANCER [None]
  - ABDOMINAL PAIN UPPER [None]
